FAERS Safety Report 5301692-5 (Version None)
Quarter: 2007Q1

REPORT INFORMATION
  Report Type: 
  Country: None (occurrence: None)
  Receive Date: 20070201
  Receipt Date: 20061212
  Transmission Date: 20070707
  Serious: No
  Sender: FDA-Public Use
  Company Number: 2006PV026850

PATIENT
  Age: 71 Year
  Sex: Female
  Weight: 81.6475 kg

DRUGS (6)
  1. BYETTA [Suspect]
     Indication: DIABETES MELLITUS NON-INSULIN-DEPENDENT
     Dosage: 5 MCG;TID;SC 5 MCG;BID;SC 10MCG;BID;5MCG;BID
     Route: 058
     Dates: start: 20060201, end: 20060301
  2. BYETTA [Suspect]
     Indication: DIABETES MELLITUS NON-INSULIN-DEPENDENT
     Dosage: 5 MCG;TID;SC 5 MCG;BID;SC 10MCG;BID;5MCG;BID
     Route: 058
     Dates: start: 20060301, end: 20060701
  3. BYETTA [Suspect]
     Indication: DIABETES MELLITUS NON-INSULIN-DEPENDENT
     Dosage: 5 MCG;TID;SC 5 MCG;BID;SC 10MCG;BID;5MCG;BID
     Route: 058
     Dates: start: 20061001, end: 20061125
  4. BYETTA [Suspect]
     Indication: DIABETES MELLITUS NON-INSULIN-DEPENDENT
     Dosage: 5 MCG;TID;SC 5 MCG;BID;SC 10MCG;BID;5MCG;BID
     Route: 058
     Dates: start: 20061126
  5. LANTUS [Concomitant]
  6. NOVOLOG [Concomitant]

REACTIONS (2)
  - BLOOD GLUCOSE INCREASED [None]
  - WEIGHT DECREASED [None]
